FAERS Safety Report 15218447 (Version 2)
Quarter: 2018Q3

REPORT INFORMATION
  Report Type: Spontaneous
  Country: US (occurrence: US)
  Receive Date: 20180730
  Receipt Date: 20180827
  Transmission Date: 20181010
  Serious: No
  Sender: FDA-Public Use
  Company Number: US-009507513-1807USA008705

PATIENT
  Age: 14 Year
  Sex: Female
  Weight: 5.44 kg

DRUGS (1)
  1. NEXPLANON [Suspect]
     Active Substance: ETONOGESTREL
     Dosage: 1 ROD, UNK; IN THE RIGHT ARM
     Route: 059
     Dates: start: 20180718

REACTIONS (5)
  - Device deployment issue [Recovered/Resolved]
  - Wound [Unknown]
  - Complication of device insertion [Recovered/Resolved]
  - Procedural pain [Unknown]
  - Device difficult to use [Recovered/Resolved]

NARRATIVE: CASE EVENT DATE: 20180718
